FAERS Safety Report 8961906 (Version 2)
Quarter: 2012Q4

REPORT INFORMATION
  Report Type: 
  Country: GB (occurrence: GB)
  Receive Date: 20121213
  Receipt Date: 20121214
  Transmission Date: 20130627
  Serious: Yes (Other)
  Sender: FDA-Public Use
  Company Number: GB-PFIZER INC-2012313279

PATIENT
  Age: 61 Year
  Sex: Female

DRUGS (2)
  1. ATORVASTATIN CALCIUM [Suspect]
     Dosage: 20 mg, daily
  2. ASPIRIN [Interacting]
     Dosage: 81 mg, daily

REACTIONS (2)
  - Drug interaction [Recovered/Resolved]
  - Epistaxis [Recovered/Resolved]
